FAERS Safety Report 6257237-9 (Version None)
Quarter: 2009Q3

REPORT INFORMATION
  Report Type: 
  Country: None (occurrence: None)
  Receive Date: 20090706
  Receipt Date: 20090624
  Transmission Date: 20100115
  Serious: Yes (Hospitalization)
  Sender: FDA-Public Use
  Company Number: KR-PFIZER INC-2006130145

PATIENT
  Age: 45 Year

DRUGS (2)
  1. SUNITINIB MALATE [Suspect]
     Indication: GASTROINTESTINAL STROMAL TUMOUR
     Route: 048
     Dates: start: 20060620, end: 20061203
  2. CODEINE [Concomitant]
     Route: 048
     Dates: start: 20060912, end: 20061009

REACTIONS (2)
  - LIVER ABSCESS [None]
  - NEUTROPENIA [None]
